FAERS Safety Report 16609503 (Version 1)
Quarter: 2019Q3

REPORT INFORMATION
  Report Type: Spontaneous
  Country: US (occurrence: US)
  Receive Date: 20190721
  Receipt Date: 20190721
  Transmission Date: 20191004
  Serious: Yes (Disabling)
  Sender: FDA-Public Use
  Company Number: None

PATIENT
  Age: 51 Year
  Sex: Female
  Weight: 83.25 kg

DRUGS (13)
  1. HUMIRA [Concomitant]
     Active Substance: ADALIMUMAB
  2. SPIRONOLACTONE. [Suspect]
     Active Substance: SPIRONOLACTONE
  3. HAIR SKIN  VITAMINS [Concomitant]
  4. LEVOFLOXACIN. [Suspect]
     Active Substance: LEVOFLOXACIN
     Indication: COLITIS
     Dosage: ?          QUANTITY:10 TABLET(S);?
     Route: 048
     Dates: start: 20181001, end: 20181008
  5. ATORVASTATIN [Concomitant]
     Active Substance: ATORVASTATIN
  6. VITAMIN [Concomitant]
     Active Substance: VITAMINS
  7. LOSARTAN. [Concomitant]
     Active Substance: LOSARTAN
  8. GEODON [Concomitant]
     Active Substance: ZIPRASIDONE HYDROCHLORIDE\ZIPRASIDONE MESYLATE
  9. JANUMET [Concomitant]
     Active Substance: METFORMIN HYDROCHLORIDE\SITAGLIPTIN PHOSPHATE
  10. KEPPRA [Concomitant]
     Active Substance: LEVETIRACETAM
  11. VITAMIN D [Concomitant]
     Active Substance: VITAMIN D NOS
  12. MELATONIN [Concomitant]
     Active Substance: MELATONIN
  13. MAGNESIUM [Concomitant]
     Active Substance: MAGNESIUM

REACTIONS (1)
  - Myalgia [None]

NARRATIVE: CASE EVENT DATE: 20181001
